FAERS Safety Report 17994418 (Version 2)
Quarter: 2020Q3

REPORT INFORMATION
  Report Type: Report from Study
  Country: None (occurrence: CO)
  Receive Date: 20200708
  Receipt Date: 20200728
  Transmission Date: 20201103
  Serious: Yes (Death)
  Sender: FDA-Public Use
  Company Number: CO-ABBVIE-20K-036-3474100-00

PATIENT
  Age: 62 Year
  Sex: Female

DRUGS (2)
  1. PARICALCITOL. [Suspect]
     Active Substance: PARICALCITOL
     Indication: CHRONIC KIDNEY DISEASE
  2. PARICALCITOL. [Suspect]
     Active Substance: PARICALCITOL
     Indication: HYPERPARATHYROIDISM SECONDARY
     Route: 048
     Dates: start: 20200220, end: 20200310

REACTIONS (2)
  - Asphyxia [Fatal]
  - Product administration error [Unknown]

NARRATIVE: CASE EVENT DATE: 2020
